FAERS Safety Report 5500337-9 (Version None)
Quarter: 2007Q4

REPORT INFORMATION
  Report Type: 
  Country: None (occurrence: None)
  Receive Date: 20071029
  Receipt Date: 20071016
  Transmission Date: 20080405
  Serious: Yes (Other)
  Sender: FDA-Public Use
  Company Number: GB-AMGEN-UK248681

PATIENT
  Age: 74 Year
  Sex: Male

DRUGS (6)
  1. NEUPOGEN [Suspect]
     Indication: CHEMOTHERAPY
     Route: 058
  2. CYCLOPHOSPHAMIDE [Concomitant]
  3. ETOPOSIDE [Concomitant]
  4. VINCRISTINE [Concomitant]
  5. PREDNISOLONE [Concomitant]
  6. ALLOPURINOL [Concomitant]

REACTIONS (2)
  - CHONDROCALCINOSIS PYROPHOSPHATE [None]
  - SEPSIS [None]
